FAERS Safety Report 21299653 (Version 1)
Quarter: 2022Q3

REPORT INFORMATION
  Report Type: Report from Study
  Country: DE (occurrence: DE)
  Receive Date: 20220906
  Receipt Date: 20220906
  Transmission Date: 20221026
  Serious: Yes (Other)
  Sender: FDA-Public Use
  Company Number: DE-SAMSUNG BIOEPIS-SB-2022-19650

PATIENT
  Age: 61 Year
  Sex: Female

DRUGS (29)
  1. ENBREL [Suspect]
     Active Substance: ETANERCEPT
     Indication: Rheumatoid arthritis
     Dosage: 50 MG
     Route: 065
     Dates: start: 201403, end: 201509
  2. METHOTREXATE SODIUM [Suspect]
     Active Substance: METHOTREXATE SODIUM
     Indication: Rheumatoid arthritis
     Dosage: 15 MG
     Route: 065
     Dates: start: 20140324
  3. METHOTREXATE SODIUM [Suspect]
     Active Substance: METHOTREXATE SODIUM
     Dosage: 15 MG
     Route: 065
     Dates: start: 20141218
  4. METHOTREXATE SODIUM [Suspect]
     Active Substance: METHOTREXATE SODIUM
     Dosage: 17.5 MG
     Route: 065
     Dates: start: 20150505
  5. METHOTREXATE SODIUM [Suspect]
     Active Substance: METHOTREXATE SODIUM
     Dosage: 17.5 MG
     Route: 065
     Dates: start: 20151019
  6. METHOTREXATE SODIUM [Suspect]
     Active Substance: METHOTREXATE SODIUM
     Dosage: 17.5 MG
     Route: 065
     Dates: start: 20160216
  7. METHOTREXATE SODIUM [Suspect]
     Active Substance: METHOTREXATE SODIUM
     Dosage: 17.5 MG
     Route: 065
     Dates: start: 20161109
  8. METHOTREXATE SODIUM [Suspect]
     Active Substance: METHOTREXATE SODIUM
     Dosage: 17.5 MG
     Route: 065
     Dates: start: 20170426
  9. METHOTREXATE SODIUM [Suspect]
     Active Substance: METHOTREXATE SODIUM
     Dosage: 17.5 MG
     Route: 065
     Dates: start: 20170830
  10. METHOTREXATE SODIUM [Suspect]
     Active Substance: METHOTREXATE SODIUM
     Dosage: 20 MG
     Route: 065
     Dates: start: 20180405
  11. METHOTREXATE SODIUM [Suspect]
     Active Substance: METHOTREXATE SODIUM
     Dosage: 20 MG
     Route: 065
     Dates: start: 20181205
  12. METHOTREXATE SODIUM [Suspect]
     Active Substance: METHOTREXATE SODIUM
     Dosage: 20 MG
     Route: 065
     Dates: start: 20190613
  13. METHOTREXATE SODIUM [Suspect]
     Active Substance: METHOTREXATE SODIUM
     Dosage: 17.5 MG
     Route: 065
     Dates: start: 20191021
  14. METHOTREXATE SODIUM [Suspect]
     Active Substance: METHOTREXATE SODIUM
     Dosage: 17.5 MG
     Route: 065
     Dates: start: 20200303
  15. METHOTREXATE SODIUM [Suspect]
     Active Substance: METHOTREXATE SODIUM
     Dosage: 20 MG
     Route: 065
     Dates: start: 20210531
  16. METHOTREXATE SODIUM [Suspect]
     Active Substance: METHOTREXATE SODIUM
     Dosage: 17.5 MG
     Route: 065
     Dates: start: 20220118
  17. ETANERCEPT [Suspect]
     Active Substance: ETANERCEPT
     Indication: Rheumatoid arthritis
     Dosage: 50 MG
     Route: 065
     Dates: start: 201606, end: 201611
  18. ETANERCEPT [Suspect]
     Active Substance: ETANERCEPT
     Dosage: 50 MG
     Route: 065
     Dates: start: 201709, end: 201908
  19. ETANERCEPT [Suspect]
     Active Substance: ETANERCEPT
     Dosage: 50 MG
     Route: 065
     Dates: start: 202010, end: 202011
  20. TOCILIZUMAB [Suspect]
     Active Substance: TOCILIZUMAB
     Indication: Rheumatoid arthritis
     Dosage: 162 MG
     Route: 065
     Dates: start: 201510, end: 201602
  21. ORENCIA [Suspect]
     Active Substance: ABATACEPT
     Indication: Rheumatoid arthritis
     Dosage: 125 MG
     Route: 065
     Dates: start: 201910, end: 202003
  22. HYDROXYCHLOROQUINE [Suspect]
     Active Substance: HYDROXYCHLOROQUINE
     Indication: Rheumatoid arthritis
     Dosage: 200 MG
     Route: 065
     Dates: start: 20140324
  23. HYDROXYCHLOROQUINE [Suspect]
     Active Substance: HYDROXYCHLOROQUINE
     Dosage: UNK
     Route: 065
     Dates: start: 20141218
  24. HYDROXYCHLOROQUINE [Suspect]
     Active Substance: HYDROXYCHLOROQUINE
     Dosage: 200 MG
     Route: 065
     Dates: start: 20160216
  25. HYDROXYCHLOROQUINE [Suspect]
     Active Substance: HYDROXYCHLOROQUINE
     Dosage: UNK
     Route: 065
     Dates: start: 20161109
  26. HYDROXYCHLOROQUINE [Suspect]
     Active Substance: HYDROXYCHLOROQUINE
     Dosage: 200 MG
     Route: 065
     Dates: start: 20170426
  27. HYDROXYCHLOROQUINE [Suspect]
     Active Substance: HYDROXYCHLOROQUINE
     Dosage: 200 MG
     Route: 065
     Dates: start: 20170830
  28. HYDROXYCHLOROQUINE [Suspect]
     Active Substance: HYDROXYCHLOROQUINE
     Dosage: UNK
     Route: 065
     Dates: start: 20180405
  29. HYDROXYCHLOROQUINE [Suspect]
     Active Substance: HYDROXYCHLOROQUINE
     Dosage: 300 MG
     Route: 065
     Dates: start: 20181205

REACTIONS (2)
  - Osteoarthritis [Recovered/Resolved]
  - Herpes zoster [Unknown]

NARRATIVE: CASE EVENT DATE: 20191125
